FAERS Safety Report 11440193 (Version 1)
Quarter: 2015Q3

REPORT INFORMATION
  Report Type: Spontaneous
  Country: US (occurrence: US)
  Receive Date: 20150901
  Receipt Date: 20150901
  Transmission Date: 20151125
  Serious: No
  Sender: FDA-Public Use
  Company Number: US-ROCHE-1143607

PATIENT
  Sex: Male

DRUGS (6)
  1. METHADONE [Concomitant]
     Active Substance: METHADONE HYDROCHLORIDE
     Indication: PAIN
     Route: 065
  2. PEGASYS [Suspect]
     Active Substance: PEGINTERFERON ALFA-2A
     Indication: HEPATITIS C
     Route: 058
     Dates: start: 20121001
  3. AMBIEN [Concomitant]
     Active Substance: ZOLPIDEM TARTRATE
     Indication: INSOMNIA
     Route: 065
  4. RIBAVIRIN. [Suspect]
     Active Substance: RIBAVIRIN
     Indication: HEPATITIS C
     Dosage: 1200 MG DAILY IN TWO DOSES (600 MG BLUE PILLS)
     Route: 048
     Dates: start: 20121001
  5. TELAPREVIR [Suspect]
     Active Substance: TELAPREVIR
     Indication: HEPATITIS C
     Route: 065
     Dates: start: 20121001
  6. MORPHINE [Concomitant]
     Active Substance: MORPHINE
     Indication: PAIN

REACTIONS (19)
  - Pyrexia [Unknown]
  - Hyperhidrosis [Unknown]
  - Erythema [Unknown]
  - Sunburn [Unknown]
  - Panic attack [Unknown]
  - Insomnia [Unknown]
  - Blood pressure increased [Recovering/Resolving]
  - Oropharyngeal pain [Unknown]
  - Gingival pain [Unknown]
  - Dyspnoea [Unknown]
  - Skin exfoliation [Unknown]
  - Anxiety [Unknown]
  - Back pain [Unknown]
  - Pain [Unknown]
  - Swelling face [Unknown]
  - Toothache [Unknown]
  - Dry mouth [Unknown]
  - Rash [Unknown]
  - Nausea [Unknown]
